FAERS Safety Report 18099356 (Version 2)
Quarter: 2020Q3

REPORT INFORMATION
  Report Type: Report from Study
  Country: US (occurrence: US)
  Receive Date: 20200731
  Receipt Date: 20200806
  Transmission Date: 20201103
  Serious: Yes (Death, Hospitalization)
  Sender: FDA-Public Use
  Company Number: US-ACTELION-A-US2018-173989

PATIENT
  Age: 74 Year
  Sex: Female
  Weight: 58.05 kg

DRUGS (4)
  1. OPSUMIT [Suspect]
     Active Substance: MACITENTAN
     Indication: PULMONARY ARTERIAL HYPERTENSION
     Dosage: 10 MG, QD
     Route: 048
  2. REMODULIN [Concomitant]
     Active Substance: TREPROSTINIL
  3. WARFARIN [Concomitant]
     Active Substance: WARFARIN
  4. REVATIO [Concomitant]
     Active Substance: SILDENAFIL CITRATE

REACTIONS (10)
  - Amnesia [Unknown]
  - Device related thrombosis [Unknown]
  - Supportive care [Unknown]
  - Weight decreased [Unknown]
  - Oxygen saturation decreased [Unknown]
  - Device dislocation [Unknown]
  - Dyspnoea [Unknown]
  - Catheter placement [Unknown]
  - Memory impairment [Unknown]
  - Death [Fatal]

NARRATIVE: CASE EVENT DATE: 20180820
